FAERS Safety Report 18244354 (Version 2)
Quarter: 2025Q2

REPORT INFORMATION
  Report Type: Spontaneous
  Country: IT (occurrence: IT)
  Receive Date: 20200909
  Receipt Date: 20250619
  Transmission Date: 20250716
  Serious: Yes (Death, Other)
  Sender: AUROBINDO
  Company Number: IT-PHARMATHEN-GPV2020PHT047202

PATIENT
  Age: 49 Year
  Sex: Female

DRUGS (1)
  1. VORICONAZOLE [Suspect]
     Active Substance: VORICONAZOLE
     Indication: Aspergillus test
     Route: 065

REACTIONS (2)
  - Cardiogenic shock [Fatal]
  - Drug ineffective [Fatal]
